FAERS Safety Report 16854326 (Version 8)
Quarter: 2025Q1

REPORT INFORMATION
  Report Type: Spontaneous
  Country: PL (occurrence: PL)
  Receive Date: 20190926
  Receipt Date: 20250320
  Transmission Date: 20250408
  Serious: Yes (Death, Life-Threatening, Other)
  Sender: AUROBINDO
  Company Number: None

PATIENT
  Age: 51 Year
  Sex: Female

DRUGS (10)
  1. IMATINIB [Interacting]
     Active Substance: IMATINIB
     Indication: Chronic myeloid leukaemia
     Route: 065
     Dates: start: 201601, end: 201609
  2. IMATINIB [Interacting]
     Active Substance: IMATINIB
     Indication: Myeloid leukaemia
     Route: 065
     Dates: start: 201705
  3. LETROZOLE [Suspect]
     Active Substance: LETROZOLE
     Indication: Breast cancer
     Route: 065
  4. LETROZOLE [Suspect]
     Active Substance: LETROZOLE
     Indication: Hormone therapy
  5. CAPECITABINE [Suspect]
     Active Substance: CAPECITABINE
     Indication: Chronic myeloid leukaemia
     Route: 065
     Dates: start: 201707
  6. PACLITAXEL [Interacting]
     Active Substance: PACLITAXEL
     Indication: Chronic myeloid leukaemia
     Dosage: UNK, EVERY WEEK (EVERY 7 DAYS,  TREATMENT WAS ALTERNATED)
     Route: 065
     Dates: start: 201607, end: 201609
  7. PACLITAXEL [Interacting]
     Active Substance: PACLITAXEL
     Route: 065
     Dates: start: 201705
  8. TAMOXIFEN [Suspect]
     Active Substance: TAMOXIFEN
     Indication: Hormone therapy
     Route: 065
  9. TAMOXIFEN [Suspect]
     Active Substance: TAMOXIFEN
     Indication: Breast cancer
  10. VINORELBINE [Suspect]
     Active Substance: VINORELBINE TARTRATE
     Indication: Chronic myeloid leukaemia
     Route: 065
     Dates: start: 201710, end: 201804

REACTIONS (15)
  - Polyneuropathy [Fatal]
  - Breast cancer metastatic [Fatal]
  - Chronic myeloid leukaemia [Fatal]
  - Disease progression [Fatal]
  - Death [Fatal]
  - Thrombocytopenia [Fatal]
  - Anaemia [Fatal]
  - Product use in unapproved indication [Fatal]
  - Drug interaction [Fatal]
  - Drug ineffective [Unknown]
  - Second primary malignancy [Recovering/Resolving]
  - Breast cancer [Unknown]
  - Malignant neoplasm progression [Unknown]
  - Off label use [Unknown]
  - Therapy partial responder [Unknown]

NARRATIVE: CASE EVENT DATE: 20160101
